FAERS Safety Report 25632165 (Version 1)
Quarter: 2025Q3

REPORT INFORMATION
  Report Type: Spontaneous
  Country: GT (occurrence: GT)
  Receive Date: 20250801
  Receipt Date: 20250801
  Transmission Date: 20251021
  Serious: Yes (Hospitalization)
  Sender: GLAXOSMITHKLINE
  Company Number: GT-GSK-GT2025096401

PATIENT
  Age: 7 Year
  Sex: Male

DRUGS (2)
  1. FLUTICASONE PROPIONATE [Suspect]
     Active Substance: FLUTICASONE PROPIONATE
     Indication: Childhood asthma
     Dosage: 1 PUFF(S), BID
  2. MONTELUKAST [Concomitant]
     Active Substance: MONTELUKAST
     Indication: Multiple allergies

REACTIONS (2)
  - Asthma [Not Recovered/Not Resolved]
  - Disease recurrence [Unknown]
